FAERS Safety Report 22014388 (Version 1)
Quarter: 2023Q1

REPORT INFORMATION
  Report Type: Spontaneous
  Country: FR (occurrence: FR)
  Receive Date: 20230221
  Receipt Date: 20230221
  Transmission Date: 20230417
  Serious: Yes (Hospitalization)
  Sender: FDA-Public Use
  Company Number: None

PATIENT
  Age: 32 Year
  Sex: Female

DRUGS (4)
  1. DULOXETINE HYDROCHLORIDE [Interacting]
     Active Substance: DULOXETINE HYDROCHLORIDE
     Indication: Product used for unknown indication
     Dosage: THERAPY END DATE : NASK
     Dates: start: 202301
  2. METHADONE HYDROCHLORIDE [Suspect]
     Active Substance: METHADONE HYDROCHLORIDE
     Indication: Product used for unknown indication
     Dosage: 4 TO 5 TABLETS OF METHADONE AT 40MG, STRENGTH : 40 MG, DURATION : 1 DAY
     Dates: start: 20230122, end: 20230122
  3. COCAINE [Suspect]
     Active Substance: COCAINE
     Indication: Product used for unknown indication
     Dosage: 1 GRAM DAILY; ABOUT 1 G/DAY, UNIT DOSE : 1 GRAM, FREQUENCY : OD, THERAPY END DATE : NASK
     Dates: start: 2023
  4. VALIUM [Concomitant]
     Active Substance: DIAZEPAM
     Indication: Product used for unknown indication
     Dates: start: 2023

REACTIONS (4)
  - Drug abuse [Unknown]
  - Acute hepatic failure [Recovering/Resolving]
  - Acute kidney injury [Not Recovered/Not Resolved]
  - Drug interaction [Unknown]

NARRATIVE: CASE EVENT DATE: 20230122
